FAERS Safety Report 11347253 (Version 2)
Quarter: 2015Q3

REPORT INFORMATION
  Report Type: Spontaneous
  Country: JP (occurrence: JP)
  Receive Date: 20150806
  Receipt Date: 20150820
  Transmission Date: 20151125
  Serious: Yes (Death)
  Sender: FDA-Public Use
  Company Number: JP-BAYER-2015-393791

PATIENT
  Sex: Male

DRUGS (2)
  1. ACETYLSALICYLIC ACID({=100 MG) [Suspect]
     Active Substance: ASPIRIN
     Dosage: UNK
     Route: 048
  2. WARFARIN [Interacting]
     Active Substance: WARFARIN
     Dosage: UNK
     Route: 048

REACTIONS (4)
  - Haematemesis [Fatal]
  - Gastric mucosal lesion [Fatal]
  - Gastric cancer stage IV [Fatal]
  - Melaena [Fatal]
